FAERS Safety Report 13711961 (Version 1)
Quarter: 2017Q3

REPORT INFORMATION
  Report Type: Spontaneous
  Country: US (occurrence: US)
  Receive Date: 20170703
  Receipt Date: 20170703
  Transmission Date: 20171127
  Serious: Yes (Hospitalization)
  Sender: FDA-Public Use
  Company Number: US-JNJFOC-20170400611

PATIENT
  Sex: Male

DRUGS (2)
  1. TOPAMAX [Suspect]
     Active Substance: TOPIRAMATE
     Indication: EPILEPSY
     Route: 048
     Dates: end: 2014
  2. TOPAMAX [Suspect]
     Active Substance: TOPIRAMATE
     Indication: EPILEPSY
     Route: 048
     Dates: start: 20111026

REACTIONS (10)
  - Dry mouth [Unknown]
  - Depression [Unknown]
  - Adverse drug reaction [Unknown]
  - Paraesthesia [Unknown]
  - Hypoaesthesia [Unknown]
  - Pollakiuria [Unknown]
  - Suicide attempt [Unknown]
  - Adverse event [Unknown]
  - Toxicity to various agents [Unknown]
  - Suicidal ideation [Unknown]
